FAERS Safety Report 6158842-0 (Version None)
Quarter: 2009Q2

REPORT INFORMATION
  Report Type: 
  Country: None (occurrence: None)
  Receive Date: 20090415
  Receipt Date: 20090331
  Transmission Date: 20091009
  Serious: Yes (Other)
  Sender: FDA-Public Use
  Company Number: JHP200900102

PATIENT
  Sex: Female

DRUGS (1)
  1. PITOCIN [Suspect]
     Indication: LABOUR INDUCTION
     Dosage: 11 MU/MIN INCREASED TO 15 MU/MIN, INTRAVENOUS
     Route: 042

REACTIONS (5)
  - ABDOMINAL PAIN [None]
  - CAESAREAN SECTION [None]
  - DRUG EXPOSURE DURING PREGNANCY [None]
  - HAEMORRHAGE [None]
  - PREMATURE SEPARATION OF PLACENTA [None]
